FAERS Safety Report 7215125-5 (Version None)
Quarter: 2011Q1

REPORT INFORMATION
  Report Type: 
  Country: None (occurrence: None)
  Receive Date: 20110107
  Receipt Date: 20100917
  Transmission Date: 20110831
  Serious: No
  Sender: FDA-Public Use
  Company Number: A0878926A

PATIENT
  Age: 77 Year
  Sex: Female

DRUGS (2)
  1. LOVAZA [Suspect]
     Dosage: 1CAPL THREE TIMES PER DAY
     Dates: end: 20100801
  2. NO CONCURRENT MEDICATION [Concomitant]

REACTIONS (4)
  - RETCHING [None]
  - DRUG INEFFECTIVE [None]
  - PRODUCT QUALITY ISSUE [None]
  - NAUSEA [None]
